FAERS Safety Report 9805468 (Version 2)
Quarter: 2014Q1

REPORT INFORMATION
  Report Type: Spontaneous
  Country: BR (occurrence: BR)
  Receive Date: 20140109
  Receipt Date: 20140109
  Transmission Date: 20141002
  Serious: Yes (Life-Threatening, Other)
  Sender: FDA-Public Use
  Company Number: BR-JNJFOC-20130509367

PATIENT
  Age: 57 Year
  Sex: Male
  Weight: 124 kg

DRUGS (11)
  1. REMICADE [Suspect]
     Indication: ANKYLOSING SPONDYLITIS
     Route: 042
     Dates: start: 20130715
  2. REMICADE [Suspect]
     Indication: ANKYLOSING SPONDYLITIS
     Route: 042
     Dates: start: 20140106
  3. REMICADE [Suspect]
     Indication: ANKYLOSING SPONDYLITIS
     Route: 042
     Dates: start: 20130513, end: 20130513
  4. MAGNESIUM PIDOLATE [Suspect]
     Indication: MUSCLE SPASMS
     Route: 065
     Dates: start: 20130513
  5. DIOSMIN [Concomitant]
     Indication: CARDIOVASCULAR DISORDER
     Route: 065
     Dates: start: 20140106
  6. DIOSMIN [Concomitant]
     Indication: CARDIOVASCULAR DISORDER
     Dosage: 450 MG
     Route: 065
     Dates: start: 20130513
  7. MAGNE-B6 [Concomitant]
     Indication: VARICOSE VEIN
     Route: 065
     Dates: start: 20130715
  8. MAGNE-B6 [Concomitant]
     Indication: VITAMIN SUPPLEMENTATION
     Route: 065
     Dates: start: 20130715
  9. DIOVAN [Concomitant]
     Indication: HYPERTENSION
     Route: 065
     Dates: start: 20140106
  10. ROSULIP [Concomitant]
     Indication: HYPERCHOLESTEROLAEMIA
     Route: 065
     Dates: start: 20140106
  11. SIBUTRAMINE [Concomitant]
     Indication: OBESITY
     Route: 065
     Dates: start: 20140106

REACTIONS (8)
  - Dyspnoea [Recovered/Resolved]
  - Respiratory distress [Recovered/Resolved]
  - Infusion related reaction [Recovered/Resolved]
  - Erythema [Recovered/Resolved]
  - Tachypnoea [Recovered/Resolved]
  - Tachycardia [Recovered/Resolved]
  - Oedema [Recovered/Resolved]
  - Feeling hot [Recovered/Resolved]
